FAERS Safety Report 10953036 (Version 2)
Quarter: 2015Q2

REPORT INFORMATION
  Report Type: Spontaneous
  Country: DE (occurrence: DE)
  Receive Date: 20150325
  Receipt Date: 20150415
  Transmission Date: 20150821
  Serious: Yes (Death, Congenital Anomaly, Other)
  Sender: FDA-Public Use
  Company Number: DE-PFIZER INC-2015100268

PATIENT
  Age: 1 Day
  Sex: Male
  Weight: .45 kg

DRUGS (7)
  1. SEROQUEL [Suspect]
     Active Substance: QUETIAPINE FUMARATE
     Indication: DEPRESSION
     Dosage: 100 MG, DAILY, 0 - 24.4 GESTATIONAL WEEK
     Route: 064
     Dates: start: 20140125, end: 20140716
  2. SERTRALINE HCL [Suspect]
     Active Substance: SERTRALINE HYDROCHLORIDE
     Indication: DEPRESSION
     Dosage: 100 MG, DAILY, 0-24.4 GESTATIONAL WEEK
     Route: 064
     Dates: start: 20140125, end: 20140716
  3. ADALAT [Concomitant]
     Active Substance: NIFEDIPINE
     Indication: HYPERTENSION
     Dosage: 10 MG, DAILY, TRIMESTER: 2ND
     Route: 064
     Dates: start: 2014
  4. CELESTAN [Concomitant]
     Active Substance: BETAMETHASONE
     Indication: MATERNAL THERAPY TO ENHANCE FOETAL LUNG MATURITY
     Dosage: UNK, TRIMESTER: 2ND
     Route: 064
  5. DIAZEPAM. [Concomitant]
     Active Substance: DIAZEPAM
     Indication: DEPRESSION
     Dosage: 10 MG, DAILY, 20.5 - 23.4 GESTATIONAL WEEK
     Route: 064
     Dates: start: 20140619, end: 2014
  6. PRESINOL [Concomitant]
     Active Substance: METHYLDOPA
     Indication: HYPERTENSION
     Dosage: 500 MG, 4X/DAY, 0 - 23.4 GESTATIONAL WEEK
     Route: 064
     Dates: start: 20140125, end: 20140709
  7. LORAZEPAM. [Concomitant]
     Active Substance: LORAZEPAM
     Indication: DEPRESSION
     Dosage: 1.25 MG, DAILY, TRIMESTER: 2ND
     Route: 064
     Dates: start: 2014, end: 20140716

REACTIONS (11)
  - Small for dates baby [Fatal]
  - Foetal growth restriction [Unknown]
  - Maternal exposure during pregnancy [Fatal]
  - Cardiogenic shock [Fatal]
  - Premature baby [Unknown]
  - Patent ductus arteriosus [Fatal]
  - Pulmonary hypertension [Fatal]
  - Ventricular septal defect [Fatal]
  - Right ventricular failure [Fatal]
  - Atrial septal defect [Fatal]
  - Congenital pulmonary valve atresia [Fatal]

NARRATIVE: CASE EVENT DATE: 2014
